FAERS Safety Report 18502206 (Version 1)
Quarter: 2020Q4

REPORT INFORMATION
  Report Type: Report from Study
  Country: None (occurrence: US)
  Receive Date: 20201113
  Receipt Date: 20201113
  Transmission Date: 20210114
  Serious: Yes (Hospitalization)
  Sender: FDA-Public Use
  Company Number: US-ABBVIE-20K-163-3645153-00

PATIENT
  Age: 69 Year
  Sex: Female

DRUGS (1)
  1. HUMIRA [Suspect]
     Active Substance: ADALIMUMAB
     Indication: RHEUMATOID ARTHRITIS
     Dosage: CITRATE FREE
     Route: 058
     Dates: end: 20201009

REACTIONS (6)
  - Respiratory tract congestion [Recovered/Resolved]
  - Oropharyngeal pain [Recovered/Resolved]
  - Arthralgia [Not Recovered/Not Resolved]
  - Immune system disorder [Unknown]
  - COVID-19 [Unknown]
  - Peripheral swelling [Unknown]

NARRATIVE: CASE EVENT DATE: 202010
